FAERS Safety Report 24566842 (Version 1)
Quarter: 2024Q4

REPORT INFORMATION
  Report Type: Spontaneous
  Country: US (occurrence: US)
  Receive Date: 20241030
  Receipt Date: 20241030
  Transmission Date: 20250114
  Serious: Yes (Other)
  Sender: NOVO NORDISK
  Company Number: US-NOVOPROD-1303471

PATIENT
  Age: 55 Year
  Sex: Female

DRUGS (2)
  1. WEGOVY [Suspect]
     Active Substance: SEMAGLUTIDE
     Indication: Weight control
     Dosage: UNKNOWN
     Route: 058
     Dates: start: 20240731
  2. TOPIRAMATE [Suspect]
     Active Substance: TOPIRAMATE
     Indication: Weight control
     Dosage: UNK
     Route: 048

REACTIONS (2)
  - Bipolar disorder [Not Recovered/Not Resolved]
  - Dissociative disorder [Not Recovered/Not Resolved]

NARRATIVE: CASE EVENT DATE: 20240101
